FAERS Safety Report 20664192 (Version 1)
Quarter: 2022Q2

REPORT INFORMATION
  Report Type: Spontaneous
  Country: US (occurrence: None)
  Receive Date: 20220401
  Receipt Date: 20220401
  Transmission Date: 20220720
  Serious: Yes (Death)
  Sender: FDA-Public Use
  Company Number: None

PATIENT
  Age: 38 Year
  Sex: Male
  Weight: 63 kg

DRUGS (1)
  1. KETAMINE\OXYTOCIN [Suspect]
     Active Substance: KETAMINE\OXYTOCIN
     Indication: Depression
     Dosage: OTHER QUANTITY : 2 INHALATION(S)?FREQUENCY : 3 TIMES A DAY?
     Route: 055
     Dates: start: 20220308, end: 20220316

REACTIONS (1)
  - Completed suicide [None]
